FAERS Safety Report 19176389 (Version 2)
Quarter: 2021Q2

REPORT INFORMATION
  Report Type: Report from Study
  Country: US (occurrence: US)
  Receive Date: 20210423
  Receipt Date: 20210524
  Transmission Date: 20210717
  Serious: No
  Sender: FDA-Public Use
  Company Number: NVSC2021US092331

PATIENT
  Sex: Female

DRUGS (8)
  1. SYNTHROID [Concomitant]
     Active Substance: LEVOTHYROXINE SODIUM
     Indication: PRODUCT USED FOR UNKNOWN INDICATION
     Dosage: UNK
     Route: 065
  2. CYTOMEL [Concomitant]
     Active Substance: LIOTHYRONINE SODIUM
     Indication: PRODUCT USED FOR UNKNOWN INDICATION
     Dosage: UNK
     Route: 065
  3. RITALIN [Concomitant]
     Active Substance: METHYLPHENIDATE HYDROCHLORIDE
     Indication: PRODUCT USED FOR UNKNOWN INDICATION
     Dosage: UNK
     Route: 065
  4. TABRECTA [Suspect]
     Active Substance: CAPMATINIB
     Dosage: 300 MG, BID
     Route: 065
     Dates: start: 202101
  5. SODIUM RISEDRONATE [Concomitant]
     Active Substance: RISEDRONATE SODIUM
     Indication: PRODUCT USED FOR UNKNOWN INDICATION
     Dosage: UNK
     Route: 065
  6. TABRECTA [Suspect]
     Active Substance: CAPMATINIB
     Indication: OEDEMA
     Dosage: UNK
     Route: 065
     Dates: start: 20210101
  7. TABRECTA [Suspect]
     Active Substance: CAPMATINIB
     Dosage: 200 MG, QD (X4)
     Route: 065
  8. TABRECTA [Suspect]
     Active Substance: CAPMATINIB
     Dosage: 400 MG, BID
     Route: 065
     Dates: start: 202101

REACTIONS (3)
  - Oedema peripheral [Unknown]
  - Generalised oedema [Unknown]
  - Oedema [Unknown]
